FAERS Safety Report 5190818-2 (Version None)
Quarter: 2006Q4

REPORT INFORMATION
  Report Type: 
  Country: None (occurrence: None)
  Receive Date: 20061215
  Receipt Date: 20061129
  Transmission Date: 20070319
  Serious: Yes (Hospitalization)
  Sender: FDA-Public Use
  Company Number: S06-FRA-05152-01

PATIENT
  Sex: Female

DRUGS (3)
  1. SEROPLEX          (ESCITALOPRAM) [Suspect]
     Dosage: 15 MG QD PO
     Route: 048
  2. SEROPLEX                     (ESCITALOPRAM) [Suspect]
     Dosage: 10 MG QD PO
     Route: 048
  3. CORTICOSTEROIDS [Concomitant]

REACTIONS (2)
  - CONSTIPATION [None]
  - URINARY RETENTION [None]
